FAERS Safety Report 8879116 (Version 1)
Quarter: 2012Q4

REPORT INFORMATION
  Report Type: Spontaneous
  Country: US (occurrence: None)
  Receive Date: 20121031
  Receipt Date: 20121031
  Transmission Date: 20130627
  Serious: Yes (Hospitalization)
  Sender: FDA-Public Use
  Company Number: None

PATIENT
  Age: 71 Year
  Sex: Male

DRUGS (1)
  1. BCG VACCINE [Suspect]
     Indication: BLADDER CANCER

REACTIONS (3)
  - Asthenia [None]
  - Dizziness [None]
  - Chills [None]
